FAERS Safety Report 8215702 (Version 6)
Quarter: 2012Q4

REPORT INFORMATION
  Report Type: Spontaneous
  Country: US (occurrence: None)
  Receive Date: 20111024
  Receipt Date: 20121026
  Transmission Date: 20130627
  Serious: Yes (Hospitalization, Other)
  Sender: FDA-Public Use
  Company Number: CIP11001751

PATIENT
  Age: 63 Year
  Sex: Female

DRUGS (53)
  1. ACTONEL [Suspect]
     Dosage: 35 MG, ONCE A WEEK, ORAL
     Route: 048
     Dates: start: 20021021, end: 200803
  2. ACTONEL [Suspect]
  3. ACTONEL [Suspect]
     Dosage: 30 MG, ORAL
     Route: 048
     Dates: start: 20021212, end: 20031006
  4. FOSAMAX [Suspect]
     Indication: OSTEOPOROSIS
     Dosage: 70 MG WEEKLY, ORAL, 10 MG, ORAL
     Route: 048
     Dates: start: 19991119, end: 20020806
  5. FOSAMAX [Suspect]
     Indication: OSTEOPOROSIS
     Dosage: 70 MG WEEKLY, ORAL, 10 MG, ORAL
     Route: 048
     Dates: start: 20001213
  6. TRIAMCINOLONE [Concomitant]
  7. PAXIL [Concomitant]
  8. ERY-TAB (ERYTHROMYCIN) [Concomitant]
  9. ETHEDENT (SODIUM FLUORIDE) [Concomitant]
  10. VIOXX [Concomitant]
  11. LIPITOR [Concomitant]
  12. ROXICET [Concomitant]
  13. HYDROCODONE W/APAP (HYDROCODONE, PARACETAMOL) [Concomitant]
  14. HYDROXYZINE [Concomitant]
  15. CLOBETASOL (COLBETASOL) [Concomitant]
  16. CIPROFLOXACIN EXTENDED-RELEASE [Concomitant]
  17. ACULAR /01001802/ (LETOROLAC TROMETHAMINE) [Concomitant]
  18. DIPROLENE (BETAMETHASONE DIPROPIONATE) [Concomitant]
  19. LOPROX (CICLOPIROX OLAMINE) [Concomitant]
  20. ZOVIRAX /00587301/ (ACICLOVIR) [Concomitant]
  21. ALUMINUM CHLORIDE (ALUMINUM CHLORIDE) [Concomitant]
  22. TRAMADOL HYDROCHLORIDE [Concomitant]
  23. FLUOXETINE [Concomitant]
  24. NITROFURANTOIN [Concomitant]
  25. BEXTRA /01401501/ (VALDECOXIB) [Concomitant]
  26. ZITHROMAX [Concomitant]
  27. NASONEX [Concomitant]
  28. XALATAN /01297301/ (LATANOPROST) [Concomitant]
  29. FLUCONAZOLE [Concomitant]
  30. CLOTRIMAZOLE W/BETAMETHASONE DIPROPIONAT (BETAMETHASONE DIPROPIONATE, CLOTRIMAZOLE) [Concomitant]
  31. ZOCOR [Concomitant]
  32. METHYLPREDNISOLONE [Concomitant]
  33. OXYCODONE AND ACETAMINOPHEN [Concomitant]
  34. ACIPHEX [Concomitant]
  35. NEXIUM /01479303 (ESOMEPRAZOLE SODIUM) [Concomitant]
  36. NABUMETONE [Concomitant]
  37. PROMETHAZINE - CODEINT /01129901/ (CODEINE PHOSPHATE, PROMETHAZINE HYDROCHLORIDE) [Concomitant]
  38. LEVAQUIN [Concomitant]
  39. LIDODERM [Concomitant]
  40. MELOXICAM [Concomitant]
  41. SKELAXIN /00611501/ (METAXALONE) [Concomitant]
  42. DICLOFENAC SODIUM [Concomitant]
  43. LOVENOX [Concomitant]
  44. CRESTOR [Concomitant]
  45. TRAMADOL/APAP (PARACETAMOL, TRAMADOL HYDROCHLORIDE) [Concomitant]
  46. GLUCOSAMINE (GLUCOSAMINE) [Concomitant]
  47. CALCIUM CARBONATE [Concomitant]
  48. ALEVE [Concomitant]
  49. CELEBREX [Concomitant]
  50. ASPIRIN [Concomitant]
  51. CRANBERRY /01512301/ (VACCINIUM MACROCARPON) [Concomitant]
  52. MULTIVITAMIN /01229101/ (VITAMINS NOS) [Concomitant]
  53. PROTONIX [Concomitant]

REACTIONS (18)
  - FEMUR FRACTURE [None]
  - Stress fracture [None]
  - Fracture displacement [None]
  - FALL [None]
  - Fracture nonunion [None]
  - Pathological fracture [None]
  - METASTATIC NEOPLASM [None]
  - IMPAIRED HEALING [None]
  - Spinal compression fracture [None]
  - FOOT FRACTURE [None]
  - BUNION [None]
  - OSTEONECROSIS [None]
  - OSTEOARTHRITIS [None]
  - BONE CALLUS EXCESSIVE [None]
  - PARAESTHESIA [None]
  - RADICULOPATHY [None]
  - SYNOVIAL CYST [None]
  - VERTEBRAL FORAMINAL STENOSIS [None]
